FAERS Safety Report 13183988 (Version 2)
Quarter: 2017Q1

REPORT INFORMATION
  Report Type: Spontaneous
  Country: JP (occurrence: JP)
  Receive Date: 20170203
  Receipt Date: 20170209
  Transmission Date: 20170428
  Serious: Yes (Other)
  Sender: FDA-Public Use
  Company Number: PHJP2017JP003363

PATIENT
  Age: 1 Year
  Sex: Female

DRUGS (2)
  1. CARBAMAZEPINE. [Suspect]
     Active Substance: CARBAMAZEPINE
     Indication: COMPLEX PARTIAL SEIZURES
     Dosage: UNK
     Route: 048
  2. VALPROATE [Concomitant]
     Active Substance: VALPROIC ACID
     Indication: EPILEPSY
     Route: 065

REACTIONS (1)
  - Epilepsy [Unknown]
